FAERS Safety Report 10531977 (Version 1)
Quarter: 2014Q4

REPORT INFORMATION
  Report Type: Spontaneous
  Country: US (occurrence: US)
  Receive Date: 20141021
  Receipt Date: 20141021
  Transmission Date: 20150529
  Serious: No
  Sender: FDA-Public Use
  Company Number: US-BAUSCH-BL-2014-005139

PATIENT
  Sex: Female
  Weight: 64.92 kg

DRUGS (5)
  1. LOSARTAN [Concomitant]
     Active Substance: LOSARTAN
     Indication: PRODUCT USED FOR UNKNOWN INDICATION
  2. LOTEMAX [Suspect]
     Active Substance: LOTEPREDNOL ETABONATE
     Indication: HERPES SIMPLEX
     Route: 047
  3. VITAMIN B [Concomitant]
     Active Substance: VITAMIN B
     Indication: PRODUCT USED FOR UNKNOWN INDICATION
  4. MAGNESIUM [Concomitant]
     Active Substance: MAGNESIUM
     Indication: PRODUCT USED FOR UNKNOWN INDICATION
  5. TIMOLOL EYE DROP [Concomitant]
     Indication: PRODUCT USED FOR UNKNOWN INDICATION

REACTIONS (3)
  - Off label use [Not Recovered/Not Resolved]
  - Eye irritation [Recovering/Resolving]
  - Eye pain [Recovering/Resolving]

NARRATIVE: CASE EVENT DATE: 2014
